FAERS Safety Report 9307462 (Version 1)
Quarter: 2013Q2

REPORT INFORMATION
  Report Type: Spontaneous
  Country: US (occurrence: US)
  Receive Date: 20130524
  Receipt Date: 20130524
  Transmission Date: 20140414
  Serious: No
  Sender: FDA-Public Use
  Company Number: US-009507513-1305USA012053

PATIENT
  Sex: Female
  Weight: 85.7 kg

DRUGS (1)
  1. PEG-INTRON [Suspect]
     Indication: HEPATITIS C
     Dosage: 150 MICROGRAM (0.5 ML), QW
     Route: 058
     Dates: start: 20130327

REACTIONS (5)
  - Insomnia [Unknown]
  - Arthralgia [Unknown]
  - Nausea [Unknown]
  - Rash [Unknown]
  - Joint swelling [Unknown]
